FAERS Safety Report 6024627-9 (Version None)
Quarter: 2008Q4

REPORT INFORMATION
  Report Type: 
  Country: None (occurrence: None)
  Receive Date: 20081224
  Receipt Date: 20081211
  Transmission Date: 20090506
  Serious: Yes (Life-Threatening, Hospitalization, Disabling)
  Sender: FDA-Public Use
  Company Number: 1000003247

PATIENT
  Age: 43 Year
  Sex: Male
  Weight: 62 kg

DRUGS (6)
  1. CITALALOPRAM (CITALOPRAM HYDROBROMIDE) (TABLETS) [Suspect]
     Indication: PERSONALITY DISORDER
     Dosage: 20 MG (20 MG, 1 IN 1 D), ORAL
     Route: 048
     Dates: start: 20061021, end: 20061103
  2. CITALOPRAM HYDROBROMIDE [Suspect]
     Indication: PERSONALITY DISORDER
     Dosage: 10 MG (10 MG, 1 IN 1 D), ORAL; 20 MG (20 MG, 1 IN1 D), ORAL
     Route: 048
     Dates: start: 20061104, end: 20061201
  3. CITALOPRAM HYDROBROMIDE [Suspect]
     Indication: PERSONALITY DISORDER
     Dosage: 10 MG (10 MG, 1 IN 1 D), ORAL; 20 MG (20 MG, 1 IN1 D), ORAL
     Route: 048
     Dates: start: 20061201, end: 20070101
  4. CITALOPRAM HYDROBROMIDE [Suspect]
     Indication: PERSONALITY DISORDER
     Dosage: 30 MG (30 MG, 1 IN 1 D), ORAL; 20 MG (20 MG, 1 IN 1 D), ORAL
     Route: 048
     Dates: start: 20070101, end: 20070425
  5. CITALOPRAM HYDROBROMIDE [Suspect]
     Indication: PERSONALITY DISORDER
     Dosage: 30 MG (30 MG, 1 IN 1 D), ORAL; 20 MG (20 MG, 1 IN 1 D), ORAL
     Route: 048
     Dates: start: 20070426
  6. IMIGRAN [Suspect]
     Dosage: 100 MG (100 MG, 1 IN 1 D)
     Dates: start: 19880101

REACTIONS (8)
  - ABNORMAL DREAMS [None]
  - AGITATION [None]
  - ANXIETY [None]
  - DIARRHOEA [None]
  - HYPERHIDROSIS [None]
  - RASH [None]
  - SUICIDE ATTEMPT [None]
  - VOMITING [None]
